FAERS Safety Report 9535388 (Version 2)
Quarter: 2013Q3

REPORT INFORMATION
  Report Type: Spontaneous
  Country: US (occurrence: US)
  Receive Date: 20130918
  Receipt Date: 20130918
  Transmission Date: 20140515
  Serious: Yes (Hospitalization, Other)
  Sender: FDA-Public Use
  Company Number: US-NAPPMUNDI-USA-2012-0082464

PATIENT
  Age: 47 Year
  Sex: Female

DRUGS (1)
  1. DILAUDID - HP INJECTION [Suspect]
     Indication: PROCEDURAL PAIN
     Dosage: UNK
     Route: 042
     Dates: start: 20110822

REACTIONS (3)
  - Hallucination [Recovered/Resolved]
  - Pruritus [Unknown]
  - Hyperhidrosis [Unknown]
